FAERS Safety Report 6192781-4 (Version None)
Quarter: 2009Q2

REPORT INFORMATION
  Report Type: 
  Country: None (occurrence: None)
  Receive Date: 20090518
  Receipt Date: 20080519
  Transmission Date: 20091009
  Serious: No
  Sender: FDA-Public Use
  Company Number: US-TYCO HEALTHCARE/MALLINCKRODT-T200800876

PATIENT

DRUGS (5)
  1. ACETAMINOPHEN AND HYDROCODONE BITARTRATE [Suspect]
     Indication: BACK PAIN
     Dosage: ONE TABLET EVERY Q 6 HOURS
     Route: 048
     Dates: start: 20030101, end: 20080512
  2. ACETAMINOPHEN AND HYDROCODONE BITARTRATE [Suspect]
     Dosage: ONE TABLET EVERY Q 6 HOURS
     Route: 048
     Dates: start: 20080516
  3. NEURONTIN [Concomitant]
     Dosage: 800 MG, TID
     Route: 048
  4. PREMARIN [Concomitant]
     Indication: MENOPAUSE
     Route: 048
  5. CYCLOBENZAPRINE [Concomitant]
     Indication: MUSCLE RELAXANT THERAPY
     Dosage: 10 MG, TID
     Route: 048

REACTIONS (2)
  - HYPERSENSITIVITY [None]
  - OEDEMA PERIPHERAL [None]
